FAERS Safety Report 6062531-0 (Version None)
Quarter: 2009Q1

REPORT INFORMATION
  Report Type: 
  Country: None (occurrence: None)
  Receive Date: 20090202
  Receipt Date: 20090202
  Transmission Date: 20090719
  Serious: No
  Sender: FDA-Public Use
  Company Number: None

PATIENT
  Age: 49 Year
  Sex: Female
  Weight: 69.4003 kg

DRUGS (2)
  1. BUPROPION HCL [Suspect]
     Indication: DEPRESSION
     Dosage: 3 TABLETS DAILY PO
     Route: 048
     Dates: start: 20080915, end: 20090130
  2. WELLBUTRIN XL [Suspect]

REACTIONS (5)
  - ANGER [None]
  - ANXIETY [None]
  - APATHY [None]
  - DEPRESSION [None]
  - PRODUCT QUALITY ISSUE [None]
